FAERS Safety Report 25112565 (Version 1)
Quarter: 2025Q1

REPORT INFORMATION
  Report Type: Spontaneous
  Country: CH (occurrence: CH)
  Receive Date: 20250324
  Receipt Date: 20250324
  Transmission Date: 20250408
  Serious: Yes (Hospitalization)
  Sender: MERCK SHARP & DOHME LLC
  Company Number: None

PATIENT
  Age: 76 Year
  Sex: Male
  Weight: 74.6 kg

DRUGS (4)
  1. PREVYMIS [Interacting]
     Active Substance: LETERMOVIR
     Indication: Cytomegalovirus test positive
     Route: 048
     Dates: start: 20250207
  2. PREVYMIS [Interacting]
     Active Substance: LETERMOVIR
     Indication: Cytomegalovirus test positive
     Route: 048
     Dates: start: 20250129, end: 20250203
  3. PROGRAF [Interacting]
     Active Substance: TACROLIMUS
     Indication: Liver transplant
     Route: 048
     Dates: start: 20250209
  4. PROGRAF [Interacting]
     Active Substance: TACROLIMUS
     Indication: Liver transplant
     Route: 048
     Dates: start: 20231229, end: 20250203

REACTIONS (2)
  - Immunosuppressant drug level increased [Recovered/Resolved]
  - Drug interaction [Recovered/Resolved]

NARRATIVE: CASE EVENT DATE: 20250129
